FAERS Safety Report 12763637 (Version 3)
Quarter: 2016Q4

REPORT INFORMATION
  Report Type: Report from Study
  Country: US (occurrence: US)
  Receive Date: 20160920
  Receipt Date: 20161109
  Transmission Date: 20170207
  Serious: No
  Sender: FDA-Public Use
  Company Number: US-009507513-1609USA008655

PATIENT
  Age: 50 Year
  Sex: Female
  Weight: 80.73 kg

DRUGS (3)
  1. DIFICID [Suspect]
     Active Substance: FIDAXOMICIN
     Indication: CLOSTRIDIUM DIFFICILE INFECTION
     Dosage: 200 MG, BID
     Route: 048
     Dates: start: 20160916, end: 20160919
  2. PRILOSEC [Concomitant]
     Active Substance: OMEPRAZOLE MAGNESIUM
     Dosage: UNK
  3. ATENOLOL. [Concomitant]
     Active Substance: ATENOLOL
     Dosage: UNK

REACTIONS (7)
  - Stomatitis [Not Recovered/Not Resolved]
  - Dry mouth [Recovered/Resolved]
  - Tongue discolouration [Recovered/Resolved]
  - Tongue pruritus [Recovered/Resolved]
  - Product quality issue [Unknown]
  - Dysgeusia [Recovered/Resolved]
  - Tongue coated [Recovered/Resolved]

NARRATIVE: CASE EVENT DATE: 20160916
